FAERS Safety Report 5218936-0 (Version None)
Quarter: 2007Q1

REPORT INFORMATION
  Report Type: 
  Country: None (occurrence: None)
  Receive Date: 20070125
  Receipt Date: 20070119
  Transmission Date: 20070707
  Serious: Yes (Life-Threatening, Hospitalization)
  Sender: FDA-Public Use
  Company Number: 2007GB00036

PATIENT
  Age: 9201 Day
  Sex: Female

DRUGS (2)
  1. MARCAINE [Suspect]
     Indication: CAESAREAN SECTION
     Route: 037
     Dates: start: 20070108, end: 20070108
  2. MARCAINE [Suspect]
     Indication: EPISIOTOMY
     Route: 037
     Dates: start: 20070108, end: 20070108

REACTIONS (4)
  - CYANOSIS [None]
  - HEART RATE DECREASED [None]
  - TACHYCARDIA [None]
  - THERAPEUTIC RESPONSE INCREASED [None]
